FAERS Safety Report 7906041-1 (Version None)
Quarter: 2011Q4

REPORT INFORMATION
  Report Type: 
  Country: None (occurrence: None)
  Receive Date: 20111110
  Receipt Date: 20111110
  Transmission Date: 20120403
  Serious: Yes (Hospitalization)
  Sender: FDA-Public Use
  Company Number: None

PATIENT
  Age: 9 Year
  Sex: Male
  Weight: 26.7 kg

DRUGS (2)
  1. ROPINIROLE [Concomitant]
  2. RISPERIDONE [Suspect]
     Indication: BIPOLAR DISORDER
     Dosage: 0.5 MG
     Route: 048

REACTIONS (5)
  - MYDRIASIS [None]
  - ABNORMAL BEHAVIOUR [None]
  - HEART RATE INCREASED [None]
  - TIC [None]
  - DRUG DISPENSING ERROR [None]
